FAERS Safety Report 22628446 (Version 1)
Quarter: 2023Q2

REPORT INFORMATION
  Report Type: Spontaneous
  Country: US (occurrence: None)
  Receive Date: 20230621
  Receipt Date: 20230621
  Transmission Date: 20230721
  Serious: Yes (unspecified)
  Sender: FDA-Public Use
  Company Number: None

PATIENT
  Age: 47 Year
  Sex: Female
  Weight: 111.6 kg

DRUGS (5)
  1. WEGOVY [Suspect]
     Active Substance: SEMAGLUTIDE
     Indication: Weight decreased
     Dosage: OTHER FREQUENCY : WEEKLY;?
     Route: 058
  2. CITALOPRAM [Suspect]
     Active Substance: CITALOPRAM HYDROBROMIDE
     Indication: Anxiety
     Dosage: FREQUENCY : DAILY;?
     Route: 048
  3. WEGOVY [Concomitant]
     Active Substance: SEMAGLUTIDE
     Dates: start: 20230607, end: 20230621
  4. CITALOPRAM [Concomitant]
     Active Substance: CITALOPRAM HYDROBROMIDE
     Dates: start: 20230607
  5. VITAMIN D3 [Concomitant]
     Active Substance: CHOLECALCIFEROL
     Dates: start: 20160628

REACTIONS (3)
  - Rash [None]
  - Rash pruritic [None]
  - Rash [None]

NARRATIVE: CASE EVENT DATE: 20230609
